FAERS Safety Report 5955365-6 (Version None)
Quarter: 2008Q4

REPORT INFORMATION
  Report Type: 
  Country: None (occurrence: None)
  Receive Date: 20081031
  Receipt Date: 20080716
  Transmission Date: 20090506
  Serious: No
  Sender: FDA-Public Use
  Company Number: 2008PV036182

PATIENT
  Age: 71 Year
  Sex: Female
  Weight: 146.5118 kg

DRUGS (8)
  1. SYMLIN [Suspect]
     Indication: TYPE 2 DIABETES MELLITUS
     Dosage: 120 MCG;BID;SC 60 MCG;BID;SC
     Route: 058
     Dates: start: 20080501, end: 20080501
  2. SYMLIN [Suspect]
     Indication: TYPE 2 DIABETES MELLITUS
     Dosage: 120 MCG;BID;SC 60 MCG;BID;SC
     Route: 058
     Dates: start: 20080501
  3. ULTRAM [Concomitant]
  4. VITAMINS [Concomitant]
  5. VITAMINS B12 [Concomitant]
  6. NEURONTIN [Concomitant]
  7. OXYBUTYNIN CHLORIDE [Concomitant]
  8. BYETTA [Concomitant]

REACTIONS (1)
  - ABDOMINAL DISCOMFORT [None]
